FAERS Safety Report 15686817 (Version 1)
Quarter: 2018Q4

REPORT INFORMATION
  Report Type: Spontaneous
  Country: US (occurrence: US)
  Receive Date: 20181204
  Receipt Date: 20181204
  Transmission Date: 20190205
  Serious: Yes (Hospitalization, Other)
  Sender: FDA-Public Use
  Company Number: US-009507513-1812USA000546

PATIENT
  Age: 54 Year
  Sex: Male

DRUGS (6)
  1. COBIMETINIB. [Suspect]
     Active Substance: COBIMETINIB
     Dosage: 40 MILLIGRAM PER DECILITRE
  2. DECITABINE. [Suspect]
     Active Substance: DECITABINE
     Indication: METASTATIC MALIGNANT MELANOMA
     Dosage: 0.1 MILLIGRAM/KILOGRAM, BIW
  3. VEMURAFENIB. [Suspect]
     Active Substance: VEMURAFENIB
     Indication: METASTATIC MALIGNANT MELANOMA
     Dosage: 960 MILLIGRAM, BID
  4. KEYTRUDA [Suspect]
     Active Substance: PEMBROLIZUMAB
     Indication: METASTATIC MALIGNANT MELANOMA
  5. COBIMETINIB. [Suspect]
     Active Substance: COBIMETINIB
     Indication: METASTATIC MALIGNANT MELANOMA
     Dosage: 60 MILLIGRAM, QD
  6. VEMURAFENIB. [Suspect]
     Active Substance: VEMURAFENIB
     Dosage: 720 UNK

REACTIONS (2)
  - Toxicity to various agents [Unknown]
  - Cytokine release syndrome [Unknown]
